FAERS Safety Report 5874146-5 (Version None)
Quarter: 2008Q3

REPORT INFORMATION
  Report Type: 
  Country: None (occurrence: None)
  Receive Date: 20080829
  Receipt Date: 20080820
  Transmission Date: 20090109
  Serious: Yes (Hospitalization)
  Sender: FDA-Public Use
  Company Number: MSTR-NO-0808S-0050

PATIENT
  Age: 58 Year
  Sex: Female
  Weight: 35.3 kg

DRUGS (2)
  1. METASTRON [Suspect]
     Indication: METASTATIC PAIN
     Dosage: I.V.
     Route: 042
     Dates: start: 20080403
  2. PACLITAXEL [Concomitant]

REACTIONS (7)
  - BONE PAIN [None]
  - CONDITION AGGRAVATED [None]
  - HOT FLUSH [None]
  - HYPOAESTHESIA [None]
  - METASTASES TO BONE [None]
  - NAUSEA [None]
  - PYREXIA [None]
